FAERS Safety Report 5217474-9 (Version None)
Quarter: 2007Q1

REPORT INFORMATION
  Report Type: 
  Country: None (occurrence: None)
  Receive Date: 20070119
  Receipt Date: 20070109
  Transmission Date: 20070707
  Serious: Yes (Other)
  Sender: FDA-Public Use
  Company Number: 07H-020-0311726-00

PATIENT

DRUGS (1)
  1. VANCOMYCIN HCL [Suspect]
     Indication: DRUG USE FOR UNKNOWN INDICATION

REACTIONS (2)
  - NEPHROPATHY TOXIC [None]
  - RENAL FAILURE ACUTE [None]
